FAERS Safety Report 10176500 (Version 3)
Quarter: 2021Q1

REPORT INFORMATION
  Report Type: Report from Study
  Country: US (occurrence: US)
  Receive Date: 20140516
  Receipt Date: 20210122
  Transmission Date: 20210419
  Serious: Yes (Other)
  Sender: FDA-Public Use
  Company Number: US-SA-2013SA120820

PATIENT
  Age: 45 Year
  Sex: Female

DRUGS (35)
  1. BACLOFEN. [Concomitant]
     Active Substance: BACLOFEN
  2. DALFAMPRIDINE. [Concomitant]
     Active Substance: DALFAMPRIDINE
  3. OMEPRAZOLE. [Concomitant]
     Active Substance: OMEPRAZOLE
  4. TERIFLUNOMIDE. [Suspect]
     Active Substance: TERIFLUNOMIDE
     Indication: MULTIPLE SCLEROSIS
     Dosage: 14 MG,QD
     Route: 048
     Dates: start: 20131115
  5. FAMOTIDINE. [Concomitant]
     Active Substance: FAMOTIDINE
  6. FLUVOXAMINE MALEATE. [Concomitant]
     Active Substance: FLUVOXAMINE MALEATE
  7. MECLIZINE [Concomitant]
     Active Substance: MECLIZINE HYDROCHLORIDE
  8. OXYBUTYNIN. [Concomitant]
     Active Substance: OXYBUTYNIN CHLORIDE
  9. POTASSIUM [Concomitant]
     Active Substance: POTASSIUM
  10. DIVALPROEX SODIUM. [Concomitant]
     Active Substance: DIVALPROEX SODIUM
  11. TRAZODONE [Concomitant]
     Active Substance: TRAZODONE HYDROCHLORIDE
  12. ARMODAFINIL. [Concomitant]
     Active Substance: ARMODAFINIL
  13. PREMARIN [Concomitant]
     Active Substance: ESTROGENS, CONJUGATED
  14. DARIFENACIN. [Concomitant]
     Active Substance: DARIFENACIN
  15. HYDROCODONE?IBUPROFEN [Concomitant]
     Active Substance: HYDROCODONE BITARTRATE\IBUPROFEN
  16. COPAXONE [Concomitant]
     Active Substance: GLATIRAMER ACETATE
     Dosage: UNK
  17. CHLORDIAZEPOXIDE. [Concomitant]
     Active Substance: CHLORDIAZEPOXIDE
  18. NITROFURANTOIN. [Concomitant]
     Active Substance: NITROFURANTOIN
  19. ESLICARBAZEPINE [Concomitant]
     Active Substance: ESLICARBAZEPINE
  20. SERTRALINE [SERTRALINE HYDROCHLORIDE] [Concomitant]
     Active Substance: SERTRALINE HYDROCHLORIDE
  21. METOCLOPRAMIDE. [Concomitant]
     Active Substance: METOCLOPRAMIDE
  22. CROMOLYN [CROMOGLICATE SODIUM] [Concomitant]
     Active Substance: CROMOLYN SODIUM
  23. BUTALBITAL APAP CAFFEINE [Concomitant]
     Active Substance: ACETAMINOPHEN\BUTALBITAL\CAFFEINE
  24. ZIPRASIDONE HYDROCHLORIDE. [Concomitant]
     Active Substance: ZIPRASIDONE HYDROCHLORIDE
  25. AIMOVIG [Concomitant]
     Active Substance: ERENUMAB-AOOE
  26. VITAMIN B12 [Concomitant]
     Active Substance: CYANOCOBALAMIN
  27. TIGAN [Concomitant]
     Active Substance: TRIMETHOBENZAMIDE HYDROCHLORIDE
  28. LORATADINE. [Concomitant]
     Active Substance: LORATADINE
  29. HYDROCODONE BITARTRATE AND ACETAMINOPHEN [Concomitant]
     Active Substance: ACETAMINOPHEN\HYDROCODONE BITARTRATE
  30. ELMIRON [Concomitant]
     Active Substance: PENTOSAN POLYSULFATE SODIUM
  31. NEXIUM [Concomitant]
     Active Substance: ESOMEPRAZOLE MAGNESIUM
  32. METOPROLOL. [Concomitant]
     Active Substance: METOPROLOL
  33. FELODIPINE. [Concomitant]
     Active Substance: FELODIPINE
  34. FOLIC ACID. [Concomitant]
     Active Substance: FOLIC ACID
  35. FERROUS SULFATE. [Concomitant]
     Active Substance: FERROUS SULFATE

REACTIONS (10)
  - Sneezing [Unknown]
  - Macular degeneration [Unknown]
  - Cough [Unknown]
  - Tremor [Not Recovered/Not Resolved]
  - Swelling face [Recovering/Resolving]
  - Memory impairment [Unknown]
  - Dry mouth [Unknown]
  - Cataract [Unknown]
  - Panic attack [Not Recovered/Not Resolved]
  - Facial operation [Unknown]

NARRATIVE: CASE EVENT DATE: 202005
